FAERS Safety Report 8300434-9 (Version None)
Quarter: 2012Q2

REPORT INFORMATION
  Report Type: 
  Country: None (occurrence: None)
  Receive Date: 20120420
  Receipt Date: 20120418
  Transmission Date: 20120825
  Serious: No
  Sender: FDA-Public Use
  Company Number: US-PFIZER INC-2012095712

PATIENT
  Sex: Male
  Weight: 106.58 kg

DRUGS (4)
  1. CHANTIX [Suspect]
     Dosage: 1 MG, 2X/DAY
     Route: 048
     Dates: start: 20120101, end: 20120401
  2. CHANTIX [Suspect]
     Indication: SMOKING CESSATION THERAPY
     Dosage: 0.5 MG, 1X/DAY
     Route: 048
     Dates: start: 20080201, end: 20080201
  3. CHANTIX [Suspect]
     Dosage: UNK
     Route: 048
     Dates: start: 20120401
  4. CHANTIX [Suspect]
     Dosage: 0.5 MG, 1X/DAY
     Route: 048
     Dates: start: 20120326, end: 20120101

REACTIONS (3)
  - THINKING ABNORMAL [None]
  - FEELING ABNORMAL [None]
  - NAUSEA [None]
